FAERS Safety Report 24726026 (Version 3)
Quarter: 2024Q4

REPORT INFORMATION
  Report Type: Report from Study
  Country: GR (occurrence: GR)
  Receive Date: 20241212
  Receipt Date: 20241220
  Transmission Date: 20250114
  Serious: Yes (Hospitalization, Other)
  Sender: AKCEA THERAPEUTICS
  Company Number: GR-AKCEA THERAPEUTICS, INC.-2024IS007144

PATIENT

DRUGS (7)
  1. TEGSEDI [Suspect]
     Active Substance: INOTERSEN SODIUM
     Indication: Hereditary neuropathic amyloidosis
     Dosage: 284 MILLIGRAM, QW
     Route: 058
     Dates: start: 20230113
  2. TEGSEDI [Suspect]
     Active Substance: INOTERSEN SODIUM
     Dosage: 284 MILLIGRAM, QW
     Route: 058
     Dates: start: 20230113
  3. PRADAXA [Concomitant]
     Active Substance: DABIGATRAN ETEXILATE MESYLATE
     Indication: Atrial fibrillation
     Dosage: 150 MILLIGRAM, BID
     Route: 048
     Dates: start: 202204
  4. LASIX [Concomitant]
     Active Substance: FUROSEMIDE
     Indication: Cardiac failure
     Dosage: 20 MILLIGRAM, BID
     Route: 048
     Dates: start: 2021
  5. VYNDAQEL [Concomitant]
     Active Substance: TAFAMIDIS MEGLUMINE
     Indication: Hereditary neuropathic amyloidosis
     Dosage: 60 MILLIGRAM, QD
     Route: 048
     Dates: start: 202206
  6. VYNDAQEL [Concomitant]
     Active Substance: TAFAMIDIS MEGLUMINE
     Dosage: 20 MILLIGRAM, QD
     Route: 048
     Dates: start: 202010, end: 202206
  7. AMIODARONE HYDROCHLORIDE [Concomitant]
     Active Substance: AMIODARONE HYDROCHLORIDE
     Indication: Arrhythmia
     Dosage: 200 MILLIGRAM 1/2 PER DAY
     Route: 048

REACTIONS (13)
  - Gingival bleeding [Recovered/Resolved]
  - Blood urine present [Recovering/Resolving]
  - Platelet count decreased [Unknown]
  - Haemolysis [Unknown]
  - Mean platelet volume increased [Unknown]
  - Red blood cell count increased [Unknown]
  - Mean cell haemoglobin decreased [Unknown]
  - Decubitus ulcer [Recovering/Resolving]
  - Cystitis klebsiella [Recovered/Resolved]
  - Platelet distribution width increased [Unknown]
  - Plateletcrit decreased [Unknown]
  - Haematocrit decreased [Unknown]
  - Haemoglobin decreased [Unknown]

NARRATIVE: CASE EVENT DATE: 20240801
